FAERS Safety Report 4774537-X (Version None)
Quarter: 2005Q3

REPORT INFORMATION
  Report Type: 
  Country: None (occurrence: None)
  Receive Date: 20050913
  Receipt Date: 20050114
  Transmission Date: 20060218
  Serious: Yes (Life-Threatening)
  Sender: FDA-Public Use
  Company Number: 2005-124354-NL

PATIENT
  Age: 68 Year
  Sex: Male

DRUGS (4)
  1. TICE BCG [Suspect]
     Indication: BLADDER CANCER
     Route: 043
     Dates: start: 20030701
  2. TAMSULOSIN HYDROCHLORIDE [Concomitant]
  3. ALLOPURINOL [Concomitant]
  4. CANDESARTAN CILEXETIL [Concomitant]

REACTIONS (4)
  - DIALYSIS [None]
  - GLOMERULONEPHRITIS ACUTE [None]
  - RENAL FAILURE [None]
  - VASCULITIS [None]
